FAERS Safety Report 7502069-4 (Version None)
Quarter: 2011Q2

REPORT INFORMATION
  Report Type: 
  Country: None (occurrence: None)
  Receive Date: 20110525
  Receipt Date: 20100811
  Transmission Date: 20111010
  Serious: No
  Sender: FDA-Public Use
  Company Number: A0875187A

PATIENT
  Age: 71 Year
  Sex: Female

DRUGS (3)
  1. VENTOLIN [Suspect]
     Dosage: 2PUFF SINGLE DOSE
     Route: 055
     Dates: start: 20100624
  2. ERYTHROMYCIN [Concomitant]
  3. MELPHALAN HYDROCHLORIDE [Concomitant]

REACTIONS (1)
  - RASH [None]
